FAERS Safety Report 15619175 (Version 1)
Quarter: 2018Q4

REPORT INFORMATION
  Report Type: Spontaneous
  Country: US (occurrence: US)
  Receive Date: 20181114
  Receipt Date: 20181114
  Transmission Date: 20190205
  Serious: No
  Sender: FDA-Public Use
  Company Number: US-SA-2018SA310242

PATIENT
  Age: 56 Year
  Sex: Male

DRUGS (1)
  1. LOVENOX [Suspect]
     Active Substance: ENOXAPARIN SODIUM
     Indication: ANTICOAGULANT THERAPY
     Dosage: 40 MG, QD
     Route: 030
     Dates: start: 20181029

REACTIONS (2)
  - Injection site discolouration [Unknown]
  - Injection site mass [Unknown]

NARRATIVE: CASE EVENT DATE: 20181030
